FAERS Safety Report 11865980 (Version 3)
Quarter: 2016Q1

REPORT INFORMATION
  Report Type: Spontaneous
  Country: US (occurrence: US)
  Receive Date: 20151223
  Receipt Date: 20160309
  Transmission Date: 20160526
  Serious: Yes (Other)
  Sender: FDA-Public Use
  Company Number: US-PFIZER INC-2015462664

PATIENT
  Age: 65 Year
  Sex: Female
  Weight: 68 kg

DRUGS (1)
  1. PREMARIN [Suspect]
     Active Substance: ESTROGENS, CONJUGATED
     Indication: HORMONE REPLACEMENT THERAPY
     Dosage: 0.625 MG, 1X/DAY
     Route: 048
     Dates: end: 201508

REACTIONS (8)
  - Cerebrovascular accident [Unknown]
  - Vaginal exfoliation [Recovering/Resolving]
  - Vulvovaginal dryness [Unknown]
  - Disorientation [Unknown]
  - Headache [Recovered/Resolved]
  - Vulvovaginal pruritus [Unknown]
  - Counterfeit drug administered [Unknown]
  - Fatigue [Unknown]

NARRATIVE: CASE EVENT DATE: 201509
